FAERS Safety Report 8290030 (Version 2)
Quarter: 2013Q4

REPORT INFORMATION
  Report Type: Spontaneous
  Country: AT (occurrence: AT)
  Receive Date: 20111214
  Receipt Date: 20131003
  Transmission Date: 20140711
  Serious: Yes (Hospitalization, Other)
  Sender: FDA-Public Use
  Company Number: AT-PFIZER INC-2011130930

PATIENT
  Age: 29 Year
  Sex: Female

DRUGS (2)
  1. SAYANA [Suspect]
     Dosage: UNK
     Route: 058
     Dates: start: 2009, end: 20100823
  2. THYREX [Concomitant]
     Dosage: UNK

REACTIONS (7)
  - Breast cancer [Unknown]
  - Breast cyst [Recovered/Resolved]
  - Injection site reaction [Not Recovered/Not Resolved]
  - Breast haemorrhage [Unknown]
  - Self esteem decreased [Unknown]
  - Fear of death [Unknown]
  - Fear [Unknown]
